FAERS Safety Report 9292933 (Version 2)
Quarter: 2013Q2

REPORT INFORMATION
  Report Type: Spontaneous
  Country: US (occurrence: US)
  Receive Date: 20130516
  Receipt Date: 20130521
  Transmission Date: 20140414
  Serious: No
  Sender: FDA-Public Use
  Company Number: US-PFIZER INC-2013149629

PATIENT
  Age: 70 Year
  Sex: Female
  Weight: 65 kg

DRUGS (2)
  1. ATORVASTATIN CALCIUM [Suspect]
     Dosage: 10 MG, 1X/DAY AT NIGHT
     Dates: start: 2013, end: 2013
  2. EVISTA [Concomitant]
     Indication: BONE DENSITY ABNORMAL
     Dosage: 60 MG, DAILY

REACTIONS (2)
  - Myalgia [Recovered/Resolved]
  - Drug ineffective [Unknown]
